FAERS Safety Report 4365334-8 (Version None)
Quarter: 2004Q2

REPORT INFORMATION
  Report Type: 
  Country: None (occurrence: None)
  Receive Date: 20040521
  Receipt Date: 20040504
  Transmission Date: 20050107
  Serious: Yes (Other)
  Sender: FDA-Public Use
  Company Number: USA040566542

PATIENT
  Sex: Male

DRUGS (3)
  1. HUMULIN 70/30 [Suspect]
  2. HUMULIN N [Suspect]
     Dosage: 110 U/DSAY
  3. HUMALOG [Suspect]
     Dosage: 62 U/DAY

REACTIONS (1)
  - AMPUTATION [None]
